FAERS Safety Report 13495249 (Version 1)
Quarter: 2017Q2

REPORT INFORMATION
  Report Type: Spontaneous
  Country: US (occurrence: US)
  Receive Date: 20170427
  Receipt Date: 20170427
  Transmission Date: 20170830
  Serious: No
  Sender: FDA-Public Use
  Company Number: None

PATIENT
  Sex: Female
  Weight: 67.05 kg

DRUGS (6)
  1. PLAQUENIL [Concomitant]
     Active Substance: HYDROXYCHLOROQUINE SULFATE
  2. CELECOXIB. [Concomitant]
     Active Substance: CELECOXIB
  3. DIOVAN [Concomitant]
     Active Substance: VALSARTAN
  4. EXEMESTANE. [Concomitant]
     Active Substance: EXEMESTANE
  5. ENBREL [Suspect]
     Active Substance: ETANERCEPT
     Indication: RHEUMATOID ARTHRITIS
     Dosage: ?          OTHER FREQUENCY:WEEKLY;?
     Route: 058
  6. ENBREL [Suspect]
     Active Substance: ETANERCEPT
     Indication: SENILE OSTEOPOROSIS
     Dosage: ?          OTHER FREQUENCY:WEEKLY;?
     Route: 058

REACTIONS (1)
  - Abdominal pain upper [None]
